FAERS Safety Report 8826917 (Version 2)
Quarter: 2012Q4

REPORT INFORMATION
  Report Type: 
  Country: AR (occurrence: AR)
  Receive Date: 20121008
  Receipt Date: 20121106
  Transmission Date: 20130627
  Serious: Yes (Hospitalization, Other)
  Sender: FDA-Public Use
  Company Number: AR-AMGEN-ARGSP2012062811

PATIENT
  Age: 62 Year
  Sex: Female

DRUGS (3)
  1. ENBREL [Suspect]
     Indication: PSORIATIC ARTHROPATHY
     Dosage: 50 mg, 2x/week
     Route: 058
     Dates: start: 20110404
  2. METHOTREXATE SODIUM [Suspect]
     Dosage: UNK
  3. T4 [Concomitant]
     Dosage: UNK

REACTIONS (5)
  - Immunosuppression [Unknown]
  - Hallucination [Recovered/Resolved]
  - Liver disorder [Not Recovered/Not Resolved]
  - White blood cell count decreased [Not Recovered/Not Resolved]
  - Pneumonia [Recovered/Resolved]
